FAERS Safety Report 13456980 (Version 1)
Quarter: 2017Q2

REPORT INFORMATION
  Report Type: Spontaneous
  Country: US (occurrence: US)
  Receive Date: 20170419
  Receipt Date: 20170419
  Transmission Date: 20170830
  Serious: No
  Sender: FDA-Public Use
  Company Number: US-BIOGEN-2017BI00388205

PATIENT
  Sex: Female

DRUGS (1)
  1. AVONEX [Suspect]
     Active Substance: INTERFERON BETA-1A
     Indication: MULTIPLE SCLEROSIS
     Route: 065
     Dates: start: 19970601, end: 20160530

REACTIONS (4)
  - Multiple sclerosis relapse [Recovered/Resolved]
  - Coordination abnormal [Unknown]
  - Dysgraphia [Unknown]
  - Limb discomfort [Unknown]
